FAERS Safety Report 20893434 (Version 1)
Quarter: 2022Q2

REPORT INFORMATION
  Report Type: Spontaneous
  Country: CA (occurrence: CA)
  Receive Date: 20220531
  Receipt Date: 20220531
  Transmission Date: 20220721
  Serious: Yes (Hospitalization)
  Sender: FDA-Public Use
  Company Number: None

PATIENT
  Age: 80 Year
  Sex: Female
  Weight: 40 kg

DRUGS (9)
  1. ATORVASTATIN [Suspect]
     Active Substance: ATORVASTATIN
     Indication: Acute myocardial infarction
     Dosage: 1 EVERY 1 DAYS
     Route: 048
  2. AMLODIPINE [Concomitant]
     Active Substance: AMLODIPINE BESYLATE
  3. ASPIRIN [Concomitant]
     Active Substance: ASPIRIN
     Route: 065
  4. TICAGRELOR [Concomitant]
     Active Substance: TICAGRELOR
  5. IRBESARTAN [Concomitant]
     Active Substance: IRBESARTAN
     Route: 065
  6. PANTOPRAZOLE SODIUM [Concomitant]
     Active Substance: PANTOPRAZOLE SODIUM
  7. SYNTHROID [Concomitant]
     Active Substance: LEVOTHYROXINE SODIUM
  8. VITAMIN B12 [Concomitant]
     Active Substance: CYANOCOBALAMIN
  9. VITAMIN D [Concomitant]
     Active Substance: VITAMIN D NOS

REACTIONS (6)
  - Fatigue [Recovering/Resolving]
  - General physical health deterioration [Recovering/Resolving]
  - Muscular weakness [Recovering/Resolving]
  - Myositis [Recovering/Resolving]
  - Pain in extremity [Recovering/Resolving]
  - Weight decreased [Recovering/Resolving]
